FAERS Safety Report 8551759-3 (Version None)
Quarter: 2012Q3

REPORT INFORMATION
  Report Type: 
  Country: None (occurrence: None)
  Receive Date: 20120730
  Receipt Date: 20120720
  Transmission Date: 20120928
  Serious: Yes (Hospitalization)
  Sender: FDA-Public Use
  Company Number: US-CELGENEUS-163-21880-12072394

PATIENT
  Sex: Male
  Weight: 63.56 kg

DRUGS (20)
  1. PREDNISONE [Concomitant]
     Dosage: 1 MILLIGRAM
     Route: 065
  2. COREG [Concomitant]
     Dosage: 12.5 MILLIGRAM
     Route: 065
  3. DEXAMETHASONE [Concomitant]
     Dosage: 2 MILLIGRAM
     Route: 065
  4. CALCITRIOL [Concomitant]
     Dosage: .25 MILLIGRAM
     Route: 065
  5. COLACE [Concomitant]
     Dosage: 50 MILLIGRAM
     Route: 065
  6. AMITIZA [Concomitant]
     Dosage: 24 MICROGRAM
     Route: 065
  7. DIGOXIN [Concomitant]
     Dosage: .25 MILLIGRAM
     Route: 065
  8. FLOMAX [Concomitant]
     Dosage: .4 MILLIGRAM
     Route: 065
  9. PRADAXA [Concomitant]
     Dosage: 75 MILLIGRAM
     Route: 065
  10. AMIODARONE HCL [Concomitant]
     Dosage: 200 MILLIGRAM
     Route: 065
  11. REVLIMID [Suspect]
     Indication: MULTIPLE MYELOMA
     Dosage: 25 MILLIGRAM
     Route: 048
     Dates: start: 20120626, end: 20120713
  12. MULTI-VITAMINS [Concomitant]
     Route: 065
  13. LIDODERM [Concomitant]
     Dosage: .5 MILLIGRAM
     Route: 065
  14. EAR DROPS AR [Concomitant]
     Dosage: 0.05-0.25%
     Route: 065
  15. LOVENOX [Concomitant]
     Dosage: 60 MILLIGRAM
     Route: 065
  16. LAMICTAL [Concomitant]
     Dosage: 100 MILLIGRAM
     Route: 065
  17. CALCIUM 500+D [Concomitant]
     Dosage: 500-400MG
     Route: 065
  18. PROTONIX [Concomitant]
     Dosage: 40 MILLIGRAM
     Route: 065
  19. AREDIA [Concomitant]
     Dosage: 90 MILLIGRAM
     Route: 065
  20. MIRALAX [Concomitant]
     Route: 065

REACTIONS (3)
  - HYPOTENSION [None]
  - LOSS OF CONSCIOUSNESS [None]
  - DISORIENTATION [None]
